FAERS Safety Report 9404866 (Version 1)
Quarter: 2013Q3

REPORT INFORMATION
  Report Type: Spontaneous
  Country: ES (occurrence: ES)
  Receive Date: 20130717
  Receipt Date: 20130717
  Transmission Date: 20140515
  Serious: Yes (Death, Other)
  Sender: FDA-Public Use
  Company Number: ES-SANOFI-AVENTIS-2013SA070903

PATIENT
  Age: 62 Year
  Sex: Female

DRUGS (8)
  1. FLUOROURACIL [Suspect]
     Indication: ADENOCARCINOMA OF COLON
     Dosage: DOSE ADMINISTERED AS INTRAVENOUS BOLUS ON DAY 1
     Route: 042
  2. FLUOROURACIL [Interacting]
     Indication: ADENOCARCINOMA OF COLON
     Dosage: DOSE ADMINISTERED AS 48 HOUR CONTINOUS INFUSION
     Route: 042
  3. OXALIPLATIN [Suspect]
     Indication: ADENOCARCINOMA OF COLON
     Dosage: DOE ADMINISTERED ON DAY 1 OF EVERY CYCLE
     Route: 042
  4. OXALIPLATIN [Suspect]
     Indication: ADENOCARCINOMA OF COLON
     Dosage: DOE ADMINISTERED ON DAY 1 OF EVERY CYCLE
     Route: 042
  5. BRIVUDINE [Interacting]
     Indication: HERPES ZOSTER
     Route: 048
  6. BEVACIZUMAB [Concomitant]
     Indication: ADENOCARCINOMA OF COLON
     Dosage: ON DAY 1
     Route: 042
  7. LEUCOVORIN [Concomitant]
     Indication: ADENOCARCINOMA OF COLON
     Dosage: 200 MG/M2
     Route: 042
  8. FAMCICLOVIR [Concomitant]

REACTIONS (15)
  - Acute respiratory failure [Fatal]
  - Toxicity to various agents [Fatal]
  - Drug interaction [Fatal]
  - Sepsis [Fatal]
  - Pyrexia [Fatal]
  - Melaena [Unknown]
  - Neurotoxicity [Unknown]
  - Leukopenia [Not Recovered/Not Resolved]
  - General physical health deterioration [Not Recovered/Not Resolved]
  - Thrombocytopenia [Not Recovered/Not Resolved]
  - Pigmentation disorder [Unknown]
  - Alopecia [Unknown]
  - Dysphagia [Unknown]
  - Abdominal pain [Unknown]
  - Oral pain [Unknown]
